FAERS Safety Report 8611944-9 (Version None)
Quarter: 2012Q3

REPORT INFORMATION
  Report Type: 
  Country: None (occurrence: None)
  Receive Date: 20120822
  Receipt Date: 20120820
  Transmission Date: 20120928
  Serious: Yes (Other)
  Sender: FDA-Public Use
  Company Number: US-PFIZER INC-2012151086

PATIENT
  Age: 73 Year
  Sex: Female
  Weight: 97.052 kg

DRUGS (6)
  1. LATANOPROST [Suspect]
     Indication: GLAUCOMA
     Dosage: UNK, DAILY
  2. LYRICA [Suspect]
     Indication: NEUROPATHY PERIPHERAL
     Dosage: 75 MG, 2X/DAY
     Route: 048
  3. PROTONIX [Suspect]
     Indication: GASTROOESOPHAGEAL REFLUX DISEASE
     Dosage: 40 MG, 1X/DAY
  4. LYRICA [Suspect]
  5. METFORMIN [Concomitant]
     Indication: DIABETES MELLITUS
     Dosage: 500 MG, TWICE A DAY, ONE IN MORNING, ONE AT NIGHT
  6. PLAVIX [Concomitant]
     Indication: POSTOPERATIVE CARE
     Dosage: UNK

REACTIONS (5)
  - GLAUCOMA [None]
  - EMPHYSEMA [None]
  - CHRONIC OBSTRUCTIVE PULMONARY DISEASE [None]
  - GAIT DISTURBANCE [None]
  - PAIN IN EXTREMITY [None]
